FAERS Safety Report 9527418 (Version 1)
Quarter: 2013Q3

REPORT INFORMATION
  Report Type: Spontaneous
  Country: US (occurrence: US)
  Receive Date: 20130917
  Receipt Date: 20130917
  Transmission Date: 20140515
  Serious: No
  Sender: FDA-Public Use
  Company Number: US-BIOGENIDEC-2013BI086774

PATIENT
  Age: 32 Year
  Sex: Female

DRUGS (10)
  1. TYSABRI [Suspect]
     Indication: MULTIPLE SCLEROSIS
     Route: 042
     Dates: start: 20100211, end: 20100802
  2. TYSABRI [Suspect]
     Indication: MULTIPLE SCLEROSIS
     Route: 042
     Dates: start: 20110112, end: 20130429
  3. COPAXONE [Concomitant]
  4. BENADRYL [Concomitant]
     Indication: PREMEDICATION
     Dates: start: 201003, end: 201304
  5. TYLENOL [Concomitant]
     Indication: PREMEDICATION
     Dates: start: 201003, end: 201304
  6. MYRBETRIQ [Concomitant]
     Indication: BLADDER DISORDER
     Route: 048
  7. OXYBUTYNIN [Concomitant]
     Indication: BLADDER DISORDER
     Route: 048
  8. ARICEPT [Concomitant]
     Indication: MEMORY IMPAIRMENT
     Dates: start: 201107, end: 201308
  9. NAMENDA [Concomitant]
     Indication: MEMORY IMPAIRMENT
     Dates: start: 201108, end: 201308
  10. PRIVIGIL [Concomitant]
     Indication: MEMORY IMPAIRMENT
     Route: 048
     Dates: start: 201204

REACTIONS (4)
  - Fear [Recovered/Resolved]
  - Anger [Recovered/Resolved]
  - Aggression [Recovered/Resolved]
  - Urticaria [Recovered/Resolved]
